FAERS Safety Report 5940983-1 (Version None)
Quarter: 2008Q4

REPORT INFORMATION
  Report Type: 
  Country: None (occurrence: None)
  Receive Date: 20081104
  Receipt Date: 20081027
  Transmission Date: 20090506
  Serious: Yes (Other)
  Sender: FDA-Public Use
  Company Number: PHHY2008DE26353

PATIENT
  Age: 76 Year
  Sex: Female

DRUGS (2)
  1. BRISERIN-N [Suspect]
     Dosage: UNK
     Dates: start: 20030101
  2. ACTOS [Concomitant]

REACTIONS (4)
  - AGEUSIA [None]
  - ANOSMIA [None]
  - NASAL CONGESTION [None]
  - RHINORRHOEA [None]
